FAERS Safety Report 19498082 (Version 2)
Quarter: 2023Q1

REPORT INFORMATION
  Report Type: Spontaneous
  Country: US (occurrence: US)
  Receive Date: 20210706
  Receipt Date: 20230131
  Transmission Date: 20230418
  Serious: Yes (Other)
  Sender: FDA-Public Use
  Company Number: US-PFIZER INC-2021771680

PATIENT
  Age: 83 Year
  Sex: Male

DRUGS (1)
  1. VYNDAMAX [Suspect]
     Active Substance: TAFAMIDIS
     Indication: Amyloidosis
     Dosage: 61 MG

REACTIONS (8)
  - Atrial flutter [Unknown]
  - Dyspnoea [Unknown]
  - Fatigue [Unknown]
  - Dizziness [Unknown]
  - Dyspnoea exertional [Unknown]
  - Weight increased [Unknown]
  - Hyperphagia [Unknown]
  - Off label use [Unknown]
